FAERS Safety Report 22157808 (Version 1)
Quarter: 2023Q1

REPORT INFORMATION
  Report Type: Spontaneous
  Country: AT (occurrence: AT)
  Receive Date: 20230330
  Receipt Date: 20230330
  Transmission Date: 20230418
  Serious: Yes (Other)
  Sender: FDA-Public Use
  Company Number: AT-APIL-2309351US

PATIENT

DRUGS (1)
  1. BOTULINUM TOXIN TYPE A [Suspect]
     Active Substance: BOTULINUM TOXIN TYPE A
     Indication: Obesity
     Dosage: UNK, SINGLE

REACTIONS (2)
  - Poisoning [Unknown]
  - Off label use [Unknown]

NARRATIVE: CASE EVENT DATE: 20230201
